FAERS Safety Report 7769495-X (Version None)
Quarter: 2011Q3

REPORT INFORMATION
  Report Type: 
  Country: None (occurrence: None)
  Receive Date: 20110922
  Receipt Date: 20110720
  Transmission Date: 20111222
  Serious: No
  Sender: FDA-Public Use
  Company Number: US-ASTRAZENECA-2011SE43389

PATIENT
  Age: 22 Year
  Sex: Male
  Weight: 132.9 kg

DRUGS (3)
  1. SEROQUEL XR [Suspect]
     Indication: SCHIZOPHRENIA
     Route: 048
     Dates: start: 20100101
  2. PROZAC [Concomitant]
  3. SEROQUEL XR [Suspect]
     Indication: BIPOLAR DISORDER
     Route: 048
     Dates: start: 20100101

REACTIONS (5)
  - DRUG DOSE OMISSION [None]
  - GAIT DISTURBANCE [None]
  - HYPERHIDROSIS [None]
  - CHILLS [None]
  - INSOMNIA [None]
